FAERS Safety Report 12573302 (Version 1)
Quarter: 2016Q3

REPORT INFORMATION
  Report Type: Spontaneous
  Country: GB (occurrence: GB)
  Receive Date: 20160720
  Receipt Date: 20160720
  Transmission Date: 20161109
  Serious: Yes (Other)
  Sender: FDA-Public Use
  Company Number: GB-AUROBINDO-AUR-APL-2016-08991

PATIENT
  Age: 28 Year
  Sex: Male

DRUGS (1)
  1. METRONIDAZOLE 200MG [Suspect]
     Active Substance: METRONIDAZOLE
     Indication: TOOTH ABSCESS
     Dosage: 200 MG, 3 TIMES A DAY
     Route: 065

REACTIONS (1)
  - Swollen tongue [Unknown]
